FAERS Safety Report 4666989-0 (Version None)
Quarter: 2005Q2

REPORT INFORMATION
  Report Type: 
  Country: None (occurrence: None)
  Receive Date: 20050518
  Receipt Date: 20050317
  Transmission Date: 20051028
  Serious: Yes (Hospitalization)
  Sender: FDA-Public Use
  Company Number: 2004122006

PATIENT
  Age: 17 Year
  Sex: Female
  Weight: 54.4316 kg

DRUGS (4)
  1. DEPO-PROVERA [Suspect]
     Indication: CONTRACEPTION
     Dosage: 1ST INJECTION, INTRAMUSCULAR
     Route: 030
     Dates: start: 20040915, end: 20040915
  2. LITHIUM CARBONATE [Concomitant]
  3. ABILIFY [Concomitant]
  4. STRATTERA [Concomitant]

REACTIONS (2)
  - DEPRESSION [None]
  - DRUG ADMINISTRATION ERROR [None]
